FAERS Safety Report 5444185-7 (Version None)
Quarter: 2007Q3

REPORT INFORMATION
  Report Type: 
  Country: None (occurrence: None)
  Receive Date: 20070904
  Receipt Date: 20070904
  Transmission Date: 20080115
  Serious: Yes (Life-Threatening, Hospitalization, Disabling)
  Sender: FDA-Public Use
  Company Number: None

PATIENT
  Age: 69 Year
  Sex: Female
  Weight: 80.2867 kg

DRUGS (1)
  1. PREVPAC [Suspect]
     Indication: GASTROENTERITIS VIRAL
     Dosage: 500 2 X DAY AM + PM
     Dates: start: 20061115, end: 20061129

REACTIONS (6)
  - DYSPNOEA [None]
  - FUNGAL INFECTION [None]
  - HEADACHE [None]
  - HEART RATE IRREGULAR [None]
  - THIRST [None]
  - THROAT TIGHTNESS [None]
